FAERS Safety Report 6199562-6 (Version None)
Quarter: 2009Q2

REPORT INFORMATION
  Report Type: 
  Country: None (occurrence: None)
  Receive Date: 20090522
  Receipt Date: 20090515
  Transmission Date: 20091009
  Serious: Yes (Disabling, Other)
  Sender: FDA-Public Use
  Company Number: B0558613A

PATIENT
  Age: 60 Year
  Sex: Male
  Weight: 83 kg

DRUGS (4)
  1. REQUIP [Suspect]
     Indication: PARKINSON'S DISEASE
     Route: 065
     Dates: start: 20080301, end: 20090101
  2. ANTI-PARKINSON'S DISEASE MEDICATION [Concomitant]
  3. ANAPRILIN [Concomitant]
     Dosage: 20MG PER DAY
     Route: 048
  4. ELDEPRYL [Concomitant]
     Dosage: 10MG PER DAY
     Route: 048

REACTIONS (7)
  - ASTHENIA [None]
  - CONDITION AGGRAVATED [None]
  - COORDINATION ABNORMAL [None]
  - DRUG INEFFECTIVE [None]
  - HEAD TITUBATION [None]
  - HYPOKINESIA [None]
  - MUSCLE RIGIDITY [None]
